FAERS Safety Report 25836083 (Version 3)
Quarter: 2025Q4

REPORT INFORMATION
  Report Type: Report from Study
  Country: ZA (occurrence: ZA)
  Receive Date: 20250923
  Receipt Date: 20251031
  Transmission Date: 20260118
  Serious: Yes (Hospitalization)
  Sender: CIPLA
  Company Number: ZA-CIPLA LTD.-2025ZA11710

PATIENT

DRUGS (4)
  1. NINTEDANIB [Suspect]
     Active Substance: NINTEDANIB
     Indication: Interstitial lung disease
     Dosage: 150 MILLIGRAM, BID
     Route: 048
     Dates: start: 202508, end: 20250911
  2. NINTEDANIB [Suspect]
     Active Substance: NINTEDANIB
     Dosage: 150 MILLIGRAM, BID (RESTARTED DRUG)
     Route: 048
     Dates: start: 20251002
  3. MOTILIUM [Concomitant]
     Active Substance: DOMPERIDONE
     Indication: Nausea
     Dosage: 10 MILLIGRAM, TAKE 1 TABLET 30 MINUTES BEFORE MEAL
     Route: 065
  4. MOTILIUM [Concomitant]
     Active Substance: DOMPERIDONE
     Indication: Vomiting

REACTIONS (4)
  - Dyspnoea [Recovering/Resolving]
  - Dizziness [Recovering/Resolving]
  - Diarrhoea [Recovering/Resolving]
  - Vomiting [Recovering/Resolving]

NARRATIVE: CASE EVENT DATE: 20250101
